FAERS Safety Report 9711110 (Version 1)
Quarter: 2013Q4

REPORT INFORMATION
  Report Type: Spontaneous
  Country: US (occurrence: US)
  Receive Date: 20131126
  Receipt Date: 20131126
  Transmission Date: 20140711
  Serious: No
  Sender: FDA-Public Use
  Company Number: US-BRISTOL-MYERS SQUIBB COMPANY-19145952

PATIENT
  Age: 34 Year
  Sex: Female
  Weight: 74.37 kg

DRUGS (2)
  1. BYETTA [Suspect]
     Indication: POLYCYSTIC OVARIES
     Dosage: INCREASED TO 10 MCG,BID; REDUCED TO 5 MCG,BID
  2. BYETTA [Suspect]
     Indication: INSULIN RESISTANCE
     Dosage: INCREASED TO 10 MCG,BID; REDUCED TO 5 MCG,BID

REACTIONS (5)
  - Off label use [Unknown]
  - Weight decreased [Unknown]
  - Vomiting [Recovered/Resolved]
  - Somnolence [Recovered/Resolved]
  - Abdominal discomfort [Recovered/Resolved]
